FAERS Safety Report 13129369 (Version 1)
Quarter: 2017Q1

REPORT INFORMATION
  Report Type: Spontaneous
  Country: US (occurrence: US)
  Receive Date: 20170118
  Receipt Date: 20170118
  Transmission Date: 20170428
  Serious: Yes (Hospitalization)
  Sender: FDA-Public Use
  Company Number: None

PATIENT
  Age: 54 Year
  Sex: Male
  Weight: 135 kg

DRUGS (1)
  1. ATORVASTATIN [Suspect]
     Active Substance: ATORVASTATIN
     Indication: HYPERLIPIDAEMIA
     Route: 048
     Dates: start: 20151204, end: 20161115

REACTIONS (4)
  - Rhabdomyolysis [None]
  - Acute kidney injury [None]
  - Tremor [None]
  - Hyperkalaemia [None]

NARRATIVE: CASE EVENT DATE: 20161116
